FAERS Safety Report 13742334 (Version 2)
Quarter: 2018Q4

REPORT INFORMATION
  Report Type: Spontaneous
  Country: FR (occurrence: FR)
  Receive Date: 20170711
  Receipt Date: 20181128
  Transmission Date: 20190204
  Serious: Yes (Hospitalization, Other)
  Sender: FDA-Public Use
  Company Number: FR-JAZZ-2017-FR-008601

PATIENT

DRUGS (1)
  1. XYREM [Suspect]
     Active Substance: SODIUM OXYBATE
     Indication: PRODUCT USED FOR UNKNOWN INDICATION

REACTIONS (8)
  - Drug dependence [Unknown]
  - Hyperleukocytosis [Unknown]
  - Drug abuse [Unknown]
  - Drug tolerance [Unknown]
  - Attention deficit/hyperactivity disorder [Unknown]
  - Psychomotor retardation [Unknown]
  - Withdrawal syndrome [Recovered/Resolved]
  - Alexithymia [Unknown]
